FAERS Safety Report 7513411-2 (Version None)
Quarter: 2011Q2

REPORT INFORMATION
  Report Type: 
  Country: None (occurrence: None)
  Receive Date: 20110531
  Receipt Date: 20110517
  Transmission Date: 20111010
  Serious: Yes (Other)
  Sender: FDA-Public Use
  Company Number: NL-UCBSA-033023

PATIENT
  Age: 47 Year
  Sex: Male

DRUGS (3)
  1. CELEBREX [Concomitant]
  2. CIMZIA [Suspect]
     Indication: RHEUMATOID ARTHRITIS
     Route: 058
     Dates: start: 20110504
  3. OMEPRAZOLE [Concomitant]

REACTIONS (3)
  - RASH GENERALISED [None]
  - SKIN IRRITATION [None]
  - PRURITUS [None]
